FAERS Safety Report 12463611 (Version 1)
Quarter: 2016Q2

REPORT INFORMATION
  Report Type: Spontaneous
  Country: IR (occurrence: IR)
  Receive Date: 20160614
  Receipt Date: 20160614
  Transmission Date: 20160815
  Serious: Yes (Hospitalization, Other)
  Sender: FDA-Public Use
  Company Number: IR-ALEMBIC PHARMACUETICALS LIMITED-2016SCAL000427

PATIENT

DRUGS (2)
  1. LAMOTRIGINE. [Suspect]
     Active Substance: LAMOTRIGINE
     Dosage: 200 MG, OVERDOSE OF 200 TABLETS OF 200 MG
  2. LAMOTRIGINE. [Suspect]
     Active Substance: LAMOTRIGINE
     Indication: BIPOLAR DISORDER
     Dosage: 200 MG, BID (MAINTENANCE TREATMENT)

REACTIONS (25)
  - Tachypnoea [Recovering/Resolving]
  - Intentional overdose [Recovering/Resolving]
  - Asthenia [Recovering/Resolving]
  - Vomiting [Recovering/Resolving]
  - Headache [Recovering/Resolving]
  - Lethargy [Recovering/Resolving]
  - Sinus tachycardia [Recovering/Resolving]
  - Loss of consciousness [Recovering/Resolving]
  - Nystagmus [Recovering/Resolving]
  - Somnolence [Recovering/Resolving]
  - Menorrhagia [Recovering/Resolving]
  - Haemoglobin decreased [Recovering/Resolving]
  - Ataxia [Recovering/Resolving]
  - Fatigue [Recovering/Resolving]
  - Dizziness [Recovering/Resolving]
  - Diplopia [Recovering/Resolving]
  - Agitation [Recovering/Resolving]
  - Generalised tonic-clonic seizure [Recovering/Resolving]
  - Dysarthria [Recovering/Resolving]
  - Vision blurred [Recovering/Resolving]
  - Hyperhidrosis [Recovering/Resolving]
  - Abdominal pain [Recovering/Resolving]
  - Dehydration [Recovering/Resolving]
  - Hypokalaemia [Recovering/Resolving]
  - Suicide attempt [Recovering/Resolving]
